FAERS Safety Report 9200354 (Version 2)
Quarter: 2013Q2

REPORT INFORMATION
  Report Type: Spontaneous
  Country: AU (occurrence: AU)
  Receive Date: 20130329
  Receipt Date: 20130510
  Transmission Date: 20140414
  Serious: Yes (Life-Threatening, Hospitalization)
  Sender: FDA-Public Use
  Company Number: AU-PFIZER INC-2013100715

PATIENT
  Sex: Female

DRUGS (4)
  1. LYRICA [Suspect]
     Indication: NEURALGIA
     Dosage: 150 MG, 2X/DAY
     Route: 048
  2. LYRICA [Suspect]
     Dosage: 300 MG, 2X/DAY
     Route: 048
     Dates: start: 20130305
  3. ZOPICLONE [Concomitant]
     Indication: INSOMNIA
  4. FLUOXETINE [Concomitant]

REACTIONS (1)
  - Grand mal convulsion [Unknown]
